FAERS Safety Report 8984230 (Version 2)
Quarter: 2013Q4

REPORT INFORMATION
  Report Type: Spontaneous
  Country: GB (occurrence: GB)
  Receive Date: 20121226
  Receipt Date: 20131004
  Transmission Date: 20140711
  Serious: Yes (Other)
  Sender: FDA-Public Use
  Company Number: GB-TEVA-359174ISR

PATIENT
  Age: 39 Year
  Sex: Male
  Weight: 116 kg

DRUGS (4)
  1. VALPROIC ACID [Suspect]
     Indication: SCHIZOPHRENIA
     Dosage: 250MG IN THE MORNING 500MG AT NIGHT. STILL TAKING.
     Route: 048
     Dates: start: 20120702
  2. ZOCOR [Suspect]
     Route: 048
     Dates: start: 2007, end: 20120724
  3. OLANZAPINE [Concomitant]
     Indication: SCHIZOPHRENIA
     Dosage: 15 MILLIGRAM DAILY; AT NIGHT
     Route: 048
     Dates: start: 2005
  4. CITALOPRAM [Concomitant]
     Indication: DEPRESSION
     Route: 048
     Dates: start: 2008

REACTIONS (2)
  - Myalgia [Recovered/Resolved]
  - Blood creatine phosphokinase increased [Recovered/Resolved]
